FAERS Safety Report 17599611 (Version 2)
Quarter: 2020Q3

REPORT INFORMATION
  Report Type: Report from Study
  Country: US (occurrence: US)
  Receive Date: 20200330
  Receipt Date: 20200714
  Transmission Date: 20201102
  Serious: Yes (Hospitalization)
  Sender: FDA-Public Use
  Company Number: US-KYOWAKIRIN-2020BKK004716

PATIENT

DRUGS (1)
  1. NOURIANZ [Suspect]
     Active Substance: ISTRADEFYLLINE
     Indication: PARKINSON^S DISEASE
     Dosage: 20 MG, DAILY
     Route: 048
     Dates: start: 20191112

REACTIONS (2)
  - Drug ineffective [Unknown]
  - Hospitalisation [Unknown]
